FAERS Safety Report 13076405 (Version 3)
Quarter: 2017Q1

REPORT INFORMATION
  Report Type: Report from Study
  Country: US (occurrence: US)
  Receive Date: 20161230
  Receipt Date: 20170116
  Transmission Date: 20170428
  Serious: No
  Sender: FDA-Public Use
  Company Number: US-AMGEN-USASL2016183782

PATIENT
  Age: 40 Year
  Sex: Female

DRUGS (1)
  1. ENBREL [Suspect]
     Active Substance: ETANERCEPT
     Indication: RHEUMATOID ARTHRITIS
     Dosage: UNK
     Route: 065
     Dates: start: 20161123, end: 20161206

REACTIONS (5)
  - Erythema [Unknown]
  - Hypersensitivity [Unknown]
  - Pruritus [Unknown]
  - Mass [Unknown]
  - Induration [Unknown]

NARRATIVE: CASE EVENT DATE: 2016
